FAERS Safety Report 20607441 (Version 1)
Quarter: 2022Q1

REPORT INFORMATION
  Report Type: Spontaneous
  Country: US (occurrence: US)
  Receive Date: 20220317
  Receipt Date: 20220317
  Transmission Date: 20220423
  Serious: No
  Sender: FDA-Public Use
  Company Number: US-PFIZER INC-2020021203

PATIENT
  Age: 12 Year
  Sex: Male
  Weight: 48.99 kg

DRUGS (2)
  1. GENOTROPIN [Suspect]
     Active Substance: SOMATROPIN
     Dosage: 1.2MG 4 DAYS A WEEK
     Route: 058
     Dates: start: 20160306
  2. GENOTROPIN [Suspect]
     Active Substance: SOMATROPIN
     Dosage: 1.4MG 3 DAYS A WEEK
     Route: 058
     Dates: start: 20160306

REACTIONS (3)
  - Device issue [Unknown]
  - Device information output issue [Unknown]
  - Poor quality device used [Unknown]
